FAERS Safety Report 19053694 (Version 1)
Quarter: 2021Q1

REPORT INFORMATION
  Report Type: Spontaneous
  Country: US (occurrence: US)
  Receive Date: 20210324
  Receipt Date: 20210324
  Transmission Date: 20210420
  Serious: No
  Sender: FDA-Public Use
  Company Number: US-ASTRAZENECA-2021A084714

PATIENT
  Sex: Male
  Weight: 113.4 kg

DRUGS (3)
  1. ALBUTEROL RESCUE INHALER [Concomitant]
     Indication: CHRONIC OBSTRUCTIVE PULMONARY DISEASE
  2. SYMBICORT [Suspect]
     Active Substance: BUDESONIDE\FORMOTEROL FUMARATE DIHYDRATE
     Indication: CHRONIC OBSTRUCTIVE PULMONARY DISEASE
     Dosage: 160 4.5MCG 2 PUFFS TWICE DAILY
     Route: 055
  3. ALBUTEROL SULFATE. [Concomitant]
     Active Substance: ALBUTEROL SULFATE
     Indication: CHRONIC OBSTRUCTIVE PULMONARY DISEASE

REACTIONS (7)
  - Dyspnoea [Not Recovered/Not Resolved]
  - Bronchospasm [Not Recovered/Not Resolved]
  - Candida infection [Recovered/Resolved]
  - Anxiety [Not Recovered/Not Resolved]
  - Incorrect dose administered by device [Unknown]
  - Intentional device misuse [Recovered/Resolved]
  - Intentional product misuse [Not Recovered/Not Resolved]
